FAERS Safety Report 9476723 (Version 2)
Quarter: 2013Q3

REPORT INFORMATION
  Report Type: Spontaneous
  Country: US (occurrence: US)
  Receive Date: 20130826
  Receipt Date: 20130826
  Transmission Date: 20140515
  Serious: No
  Sender: FDA-Public Use
  Company Number: US-BRISTOL-MYERS SQUIBB COMPANY-17125089

PATIENT
  Age: 55 Year
  Sex: Male

DRUGS (4)
  1. KENALOG-40 INJ [Suspect]
     Dates: start: 20121029
  2. AMBIEN [Concomitant]
  3. NEXIUM [Concomitant]
  4. HYDROCODONE [Concomitant]

REACTIONS (2)
  - Dizziness [Unknown]
  - Headache [Not Recovered/Not Resolved]
